FAERS Safety Report 13143047 (Version 2)
Quarter: 2017Q1

REPORT INFORMATION
  Report Type: Spontaneous
  Country: US (occurrence: US)
  Receive Date: 20170124
  Receipt Date: 20170310
  Transmission Date: 20170428
  Serious: No
  Sender: FDA-Public Use
  Company Number: US-PFIZER INC-2016344289

PATIENT
  Age: 44 Year
  Sex: Female

DRUGS (7)
  1. LYRICA [Suspect]
     Active Substance: PREGABALIN
     Dosage: 500 MG, DAILY [TEN CAPSULES OF 50 MG EVERY DAY)
  2. LYRICA [Suspect]
     Active Substance: PREGABALIN
     Indication: FIBROMYALGIA
     Dosage: 225 MG, 2X/DAY
     Route: 048
  3. LYRICA [Suspect]
     Active Substance: PREGABALIN
     Dosage: 225 MG, 2X/DAY
     Dates: start: 2010
  4. NATURE-THROID [Concomitant]
     Active Substance: THYROID, PORCINE
     Dosage: UNK UNK, 2X/DAY
     Dates: start: 2016
  5. MOTRIN [Concomitant]
     Active Substance: IBUPROFEN
     Dosage: 200 MG, 2X PER DAY AS NEEDED
     Dates: start: 2000
  6. ALPRAZOLAM. [Concomitant]
     Active Substance: ALPRAZOLAM
     Dosage: 1 MG, 2X/DAY
     Dates: start: 2010
  7. VITAMIN D [Concomitant]
     Active Substance: CHOLECALCIFEROL
     Dosage: UNK UNK, 1X PER WEEK
     Dates: start: 2015

REACTIONS (3)
  - Intentional product use issue [Unknown]
  - Stress [Unknown]
  - Abdominal discomfort [Unknown]
